FAERS Safety Report 7995740-1 (Version None)
Quarter: 2011Q4

REPORT INFORMATION
  Report Type: 
  Country: None (occurrence: None)
  Receive Date: 20111220
  Receipt Date: 20111212
  Transmission Date: 20120403
  Serious: Yes (Other)
  Sender: FDA-Public Use
  Company Number: US-BAYER-2011-120142

PATIENT
  Sex: Female

DRUGS (2)
  1. ALEVE (CAPLET) [Suspect]
     Route: 048
  2. IBUPROFEN (ADVIL) [Suspect]
     Dosage: 800 MG, UNK

REACTIONS (3)
  - MALAISE [None]
  - ULCER HAEMORRHAGE [None]
  - ABDOMINAL PAIN UPPER [None]
